FAERS Safety Report 11681724 (Version 3)
Quarter: 2017Q2

REPORT INFORMATION
  Report Type: Spontaneous
  Country: JP (occurrence: JP)
  Receive Date: 20151029
  Receipt Date: 20170604
  Transmission Date: 20170829
  Serious: Yes (Hospitalization)
  Sender: FDA-Public Use
  Company Number: JP-ACCORD-034967

PATIENT
  Age: 64 Year
  Sex: Female

DRUGS (1)
  1. METHOTREXATE. [Suspect]
     Active Substance: METHOTREXATE
     Indication: RHEUMATOID ARTHRITIS
     Dosage: DOSE: 4-6 MG/WEEK.?RECEIVED FOR 11 YEARS AND 10 MONTHS (142MONTHS). ?(TOTAL AMOUNT OF MTX: 2356 MG

REACTIONS (2)
  - Angiocentric lymphoma [Recovering/Resolving]
  - Epstein-Barr virus infection [Unknown]
